FAERS Safety Report 8520193-4 (Version None)
Quarter: 2012Q3

REPORT INFORMATION
  Report Type: 
  Country: None (occurrence: None)
  Receive Date: 20120719
  Receipt Date: 20120710
  Transmission Date: 20120928
  Serious: Yes (Hospitalization)
  Sender: FDA-Public Use
  Company Number: CA-JNJFOC-20120510677

PATIENT
  Sex: Female
  Weight: 128 kg

DRUGS (4)
  1. REMICADE [Suspect]
     Route: 042
     Dates: start: 20120321
  2. REMICADE [Suspect]
     Indication: ANKYLOSING SPONDYLITIS
     Route: 042
     Dates: start: 20060601
  3. REMICADE [Suspect]
     Route: 042
     Dates: start: 20120710
  4. REMICADE [Suspect]
     Route: 042
     Dates: start: 20100601

REACTIONS (1)
  - NEPHROLITHIASIS [None]
